FAERS Safety Report 11708405 (Version 1)
Quarter: 2015Q4

REPORT INFORMATION
  Report Type: Spontaneous
  Country: US (occurrence: US)
  Receive Date: 20151104
  Receipt Date: 20151104
  Transmission Date: 20160304
  Serious: No
  Sender: FDA-Public Use
  Company Number: US-ELI_LILLY_AND_COMPANY-US201105005751

PATIENT
  Age: 84 Year
  Sex: Male

DRUGS (5)
  1. FORTEO [Suspect]
     Active Substance: TERIPARATIDE
     Dosage: 20 UG, QD
     Route: 058
     Dates: start: 20110520
  2. FORTEO [Suspect]
     Active Substance: TERIPARATIDE
     Indication: OSTEOPOROSIS
     Dosage: 20 UG, QD
     Route: 058
  3. FORTEO [Suspect]
     Active Substance: TERIPARATIDE
     Dosage: 20 UG, QD
     Route: 058
  4. FORTEO [Suspect]
     Active Substance: TERIPARATIDE
     Dosage: 20 UG, QD
     Route: 058
     Dates: end: 20110625
  5. COUMADIN [Concomitant]
     Active Substance: WARFARIN SODIUM
     Indication: CARDIAC FIBRILLATION

REACTIONS (30)
  - Tremor [Recovered/Resolved]
  - Sleep disorder due to a general medical condition [Unknown]
  - Dizziness [Recovered/Resolved]
  - Abdominal distension [Not Recovered/Not Resolved]
  - Malaise [Recovered/Resolved]
  - Somnolence [Recovered/Resolved]
  - Paraesthesia [Unknown]
  - Vomiting [Recovered/Resolved]
  - Fatigue [Unknown]
  - Hypoaesthesia [Unknown]
  - Asthenia [Recovered/Resolved]
  - Dizziness [Recovered/Resolved]
  - Pain [Unknown]
  - Visual impairment [Not Recovered/Not Resolved]
  - Decreased appetite [Recovered/Resolved]
  - Personality change [Unknown]
  - Urine flow decreased [Recovered/Resolved]
  - Nervousness [Recovered/Resolved]
  - Pain in extremity [Unknown]
  - Intentional product misuse [Unknown]
  - Arthralgia [Unknown]
  - Feeling of body temperature change [Not Recovered/Not Resolved]
  - Swelling [Unknown]
  - Dyskinesia [Unknown]
  - Nausea [Recovering/Resolving]
  - Insomnia [Unknown]
  - Sensory loss [Recovered/Resolved]
  - Abdominal pain upper [Recovered/Resolved]
  - Hot flush [Unknown]
  - Nausea [Recovered/Resolved]

NARRATIVE: CASE EVENT DATE: 201105
